FAERS Safety Report 13123193 (Version 2)
Quarter: 2017Q2

REPORT INFORMATION
  Report Type: Spontaneous
  Country: BR (occurrence: BR)
  Receive Date: 20170117
  Receipt Date: 20170410
  Transmission Date: 20170830
  Serious: Yes (Hospitalization)
  Sender: FDA-Public Use
  Company Number: BR-ALLERGAN-1701723US

PATIENT

DRUGS (1)
  1. ATROPINA 0.5% [Suspect]
     Active Substance: ATROPINE SULFATE
     Indication: MYDRIASIS
     Dosage: 2 GTT, UNK
     Route: 047
     Dates: start: 20170113, end: 20170113

REACTIONS (3)
  - Wrong drug administered [Unknown]
  - Heart rate decreased [Recovered/Resolved]
  - Product packaging confusion [Unknown]

NARRATIVE: CASE EVENT DATE: 20170113
